FAERS Safety Report 4337991-3 (Version None)
Quarter: 2004Q2

REPORT INFORMATION
  Report Type: 
  Country: None (occurrence: None)
  Receive Date: 20040407
  Receipt Date: 20040319
  Transmission Date: 20050107
  Serious: Yes (Life-Threatening, Hospitalization)
  Sender: FDA-Public Use
  Company Number: JP_040302828

PATIENT
  Age: 43 Year
  Sex: Female
  Weight: 46 kg

DRUGS (8)
  1. GEMZAR [Suspect]
     Indication: PANCREATIC CARCINOMA
     Dosage: 250 MG/M2 OTHER
     Route: 050
     Dates: start: 20011120, end: 20011211
  2. MS CONTIN [Concomitant]
  3. VOLTAREN [Concomitant]
  4. HALCION [Concomitant]
  5. MAGNESIUM OXIDE [Concomitant]
  6. AMINOFLUID [Concomitant]
  7. FAMOTIDINE [Concomitant]
  8. VITAMEDIN INTRAVENOUS [Concomitant]

REACTIONS (4)
  - BLOOD PRESSURE DECREASED [None]
  - CHOLANGITIS [None]
  - PANCREATIC HAEMORRHAGE [None]
  - SEPSIS [None]
